FAERS Safety Report 5066191-7 (Version None)
Quarter: 2006Q3

REPORT INFORMATION
  Report Type: 
  Country: None (occurrence: None)
  Receive Date: 20060703
  Receipt Date: 20060320
  Transmission Date: 20061208
  Serious: No
  Sender: FDA-Public Use
  Company Number: ENTC2006-0058

PATIENT
  Age: 50 Year
  Sex: Female

DRUGS (2)
  1. STALEVO 50 [Suspect]
     Indication: PARKINSON'S DISEASE
     Dosage: 750 MG, 5 IN 1 D, ORAL
     Route: 048
     Dates: start: 20051101, end: 20060308
  2. SINEMET [Concomitant]

REACTIONS (3)
  - CONDITION AGGRAVATED [None]
  - DRUG EFFECT DECREASED [None]
  - GASTROOESOPHAGEAL REFLUX DISEASE [None]
